FAERS Safety Report 18523274 (Version 2)
Quarter: 2020Q4

REPORT INFORMATION
  Report Type: Spontaneous
  Country: US (occurrence: US)
  Receive Date: 20201119
  Receipt Date: 20201203
  Transmission Date: 20210114
  Serious: No
  Sender: FDA-Public Use
  Company Number: US-THERATECHNOLOGIES INC.-2020-THE-TES-000278

PATIENT
  Age: 47 Year
  Sex: Male

DRUGS (4)
  1. EGRIFTA [Suspect]
     Active Substance: TESAMORELIN ACETATE
     Indication: PRODUCT USED FOR UNKNOWN INDICATION
     Dosage: 2 MG, QD
     Route: 058
     Dates: start: 201907, end: 2019
  2. EGRIFTA [Suspect]
     Active Substance: TESAMORELIN ACETATE
     Dosage: 2 MG, EVERY OTHER DAY
     Route: 058
     Dates: start: 2019, end: 202003
  3. EGRIFTA SV [Suspect]
     Active Substance: TESAMORELIN ACETATE
     Dosage: UNK
     Dates: start: 20201116
  4. EGRIFTA SV [Suspect]
     Active Substance: TESAMORELIN ACETATE
     Indication: PRODUCT USED FOR UNKNOWN INDICATION
     Dosage: UNK
     Dates: start: 20201115, end: 20201116

REACTIONS (8)
  - Syringe issue [Recovered/Resolved]
  - Fatigue [Unknown]
  - Somnolence [Recovered/Resolved]
  - Lethargy [Recovered/Resolved]
  - Product dose omission issue [Recovered/Resolved]
  - Peripheral swelling [Recovered/Resolved]
  - Injection site erythema [Unknown]
  - Product reconstitution quality issue [Recovered/Resolved]

NARRATIVE: CASE EVENT DATE: 20201115
